FAERS Safety Report 8973859 (Version 1)
Quarter: 2012Q4

REPORT INFORMATION
  Report Type: 
  Country: US (occurrence: US)
  Receive Date: 20121218
  Receipt Date: 20121218
  Transmission Date: 20130627
  Serious: No
  Sender: FDA-Public Use
  Company Number: US-BRISTOL-MYERS SQUIBB COMPANY-16895286

PATIENT
  Sex: Male

DRUGS (2)
  1. ABILIFY TABS 5 MG [Suspect]
     Indication: DEPRESSION
     Dosage: Started on Abilify 2mg and was titrated up to Abilify 5mg.
  2. ALPRAZOLAM [Suspect]

REACTIONS (1)
  - Headache [Unknown]
